FAERS Safety Report 8605124-0 (Version None)
Quarter: 2012Q3

REPORT INFORMATION
  Report Type: 
  Country: None (occurrence: None)
  Receive Date: 20120820
  Receipt Date: 20120817
  Transmission Date: 20120928
  Serious: Yes (Hospitalization)
  Sender: FDA-Public Use
  Company Number: AT-BRISTOL-MYERS SQUIBB COMPANY-16837320

PATIENT
  Age: 65 Year
  Sex: Male

DRUGS (3)
  1. HYDROCORTONE [Concomitant]
     Dates: start: 20120803
  2. ZOFRAN [Concomitant]
     Dates: start: 20120803, end: 20120803
  3. IPILIMUMAB [Suspect]
     Indication: METASTATIC MALIGNANT MELANOMA
     Dosage: NO OF COURCES:3
     Route: 042
     Dates: start: 20120601, end: 20120713

REACTIONS (1)
  - HYPONATRAEMIA [None]
